FAERS Safety Report 6246164-9 (Version None)
Quarter: 2009Q2

REPORT INFORMATION
  Report Type: 
  Country: None (occurrence: None)
  Receive Date: 20090626
  Receipt Date: 20090619
  Transmission Date: 20091009
  Serious: Yes (Hospitalization)
  Sender: FDA-Public Use
  Company Number: US-BIOGENIDEC-2008BI005799

PATIENT
  Age: 66 Year
  Sex: Female

DRUGS (2)
  1. AVONEX [Suspect]
     Indication: MULTIPLE SCLEROSIS
     Route: 030
     Dates: start: 20070524, end: 20070801
  2. AVONEX [Suspect]
     Route: 030
     Dates: start: 20070901, end: 20080401

REACTIONS (6)
  - HALLUCINATIONS, MIXED [None]
  - MAJOR DEPRESSION [None]
  - MENTAL STATUS CHANGES [None]
  - MULTIPLE DRUG OVERDOSE [None]
  - SINUS DISORDER [None]
  - SUICIDE ATTEMPT [None]
